FAERS Safety Report 15866608 (Version 2)
Quarter: 2019Q2

REPORT INFORMATION
  Report Type: Spontaneous
  Country: BR (occurrence: BR)
  Receive Date: 20190125
  Receipt Date: 20190412
  Transmission Date: 20190711
  Serious: Yes (Hospitalization, Other)
  Sender: FDA-Public Use
  Company Number: BR-ABBVIE-19P-020-2639288-00

PATIENT
  Age: 3 Year
  Sex: Female
  Weight: 14.87 kg

DRUGS (4)
  1. DEPAKOTE [Suspect]
     Active Substance: DIVALPROEX SODIUM
     Indication: PRODUCT USED FOR UNKNOWN INDICATION
     Route: 065
     Dates: start: 20071215
  2. DEPAKOTE [Suspect]
     Active Substance: DIVALPROEX SODIUM
     Dosage: START DATE: 1 YEAR AFTER THE FIRST SEIZURE; DURATION: A LITTLE OVER 2 YEARS.
     Route: 065
     Dates: end: 201103
  3. PHENOBARBITAL. [Concomitant]
     Active Substance: PHENOBARBITAL
     Indication: PRODUCT USED FOR UNKNOWN INDICATION
  4. PHENOBARBITAL. [Concomitant]
     Active Substance: PHENOBARBITAL
     Dosage: FORM STRENGTH: 100 MG/ML 2ML
     Route: 042
     Dates: start: 20110326

REACTIONS (41)
  - Unresponsive to stimuli [Unknown]
  - Screaming [Unknown]
  - Cerebrovascular accident [Unknown]
  - Pallor [Recovered/Resolved]
  - Pyrexia [Recovered/Resolved]
  - Skin lesion [Unknown]
  - Hypoxia [Unknown]
  - Reye^s syndrome [Unknown]
  - Acute respiratory distress syndrome [Recovering/Resolving]
  - Seizure [Recovered/Resolved]
  - Tremor [Unknown]
  - Eyelid oedema [Recovering/Resolving]
  - Spinal instability [Unknown]
  - Hepatic enzyme increased [Recovered/Resolved]
  - Bladder dilatation [Unknown]
  - Muscle contractions involuntary [Unknown]
  - Cyanosis central [Unknown]
  - Peripheral coldness [Unknown]
  - Encephalopathy [Unknown]
  - Vomiting [Unknown]
  - Asthenia [Unknown]
  - Product use issue [Recovered/Resolved]
  - Dysphagia [Unknown]
  - Movement disorder [Unknown]
  - Dehydration [Recovered/Resolved]
  - Swelling [Unknown]
  - Oedema peripheral [Unknown]
  - Face oedema [Unknown]
  - Viral infection [Unknown]
  - Oedema peripheral [Recovering/Resolving]
  - Medical induction of coma [Unknown]
  - Visual impairment [Unknown]
  - Flushing [Unknown]
  - Tongue disorder [Unknown]
  - Cardio-respiratory arrest [Unknown]
  - Quadriplegia [Unknown]
  - Headache [Unknown]
  - Abdominal pain [Unknown]
  - Off label use [Recovered/Resolved]
  - Hyperthermia [Unknown]
  - Abdominal distension [Unknown]

NARRATIVE: CASE EVENT DATE: 201103
